FAERS Safety Report 6273175-X (Version None)
Quarter: 2009Q3

REPORT INFORMATION
  Report Type: 
  Country: None (occurrence: None)
  Receive Date: 20090720
  Receipt Date: 20090715
  Transmission Date: 20100115
  Serious: Yes (Life-Threatening, Hospitalization)
  Sender: FDA-Public Use
  Company Number: FR-BRISTOL-MYERS SQUIBB COMPANY-14669295

PATIENT
  Age: 56 Year
  Sex: Male

DRUGS (8)
  1. ABILIFY [Suspect]
     Indication: PSYCHOTIC DISORDER
     Route: 048
     Dates: start: 20090531, end: 20090603
  2. TENSTATEN [Suspect]
     Indication: HYPERTENSION
     Route: 048
     Dates: start: 20090201, end: 20090603
  3. RISPERDAL [Suspect]
     Dates: start: 20090609, end: 20090611
  4. LOXAPAC [Suspect]
  5. THIAZIDE [Concomitant]
  6. LEVOTHYROX [Concomitant]
     Indication: HYPOTHYROIDISM
     Route: 048
  7. IPERTEN [Concomitant]
     Indication: HYPERTENSION
     Route: 048
  8. ODRIK [Concomitant]
     Indication: HYPERTENSION
     Route: 048

REACTIONS (1)
  - POLYDIPSIA [None]
